FAERS Safety Report 12712439 (Version 1)
Quarter: 2016Q3

REPORT INFORMATION
  Report Type: Spontaneous
  Country: US (occurrence: US)
  Receive Date: 20160902
  Receipt Date: 20160902
  Transmission Date: 20161109
  Serious: Yes (Other)
  Sender: FDA-Public Use
  Company Number: US-DEPOMED, INC.-US-2016DEP011867

PATIENT

DRUGS (1)
  1. GRALISE [Suspect]
     Active Substance: GABAPENTIN
     Indication: LUMBOSACRAL RADICULOPATHY
     Dosage: 3 DF, QD AFTER EVENING MEAL
     Route: 048

REACTIONS (6)
  - Vomiting [Unknown]
  - Headache [Unknown]
  - Diarrhoea [Unknown]
  - Product use issue [Unknown]
  - Nausea [Unknown]
  - Chest pain [Unknown]
